FAERS Safety Report 5063610-7 (Version None)
Quarter: 2006Q3

REPORT INFORMATION
  Report Type: 
  Country: None (occurrence: None)
  Receive Date: 20060703
  Receipt Date: 20051107
  Transmission Date: 20061208
  Serious: No
  Sender: FDA-Public Use
  Company Number: 2005S1011085

PATIENT
  Age: 44 Year
  Sex: Male
  Weight: 98.4306 kg

DRUGS (16)
  1. CLOZAPINE [Suspect]
     Indication: SCHIZOPHRENIA, PARANOID TYPE
     Dosage: 200 MG;QAM;PO; SEE IMAGE
     Route: 048
     Dates: end: 20051227
  2. CLOZAPINE [Suspect]
     Indication: SCHIZOPHRENIA, PARANOID TYPE
     Dosage: 200 MG;QAM;PO; SEE IMAGE
     Route: 048
     Dates: end: 20051227
  3. CLOZAPINE [Suspect]
     Indication: SCHIZOPHRENIA, PARANOID TYPE
     Dosage: 200 MG;QAM;PO; SEE IMAGE
     Route: 048
     Dates: start: 20051228
  4. DEPAKOTE [Suspect]
     Indication: SCHIZOPHRENIA
     Dosage: 1500 MG;HS;PO; SEE IMAGE
     Route: 048
     Dates: end: 20050908
  5. DEPAKOTE [Suspect]
     Indication: SCHIZOPHRENIA
     Dosage: 1500 MG;HS;PO; SEE IMAGE
     Route: 048
     Dates: start: 20050908, end: 20051207
  6. DEPAKOTE [Suspect]
     Indication: SCHIZOPHRENIA
     Dosage: 1500 MG;HS;PO; SEE IMAGE
     Route: 048
     Dates: end: 20051207
  7. VITAMINS NOS [Concomitant]
  8. LORAZEPAM [Concomitant]
  9. BISACODYL [Concomitant]
  10. MAGNESIUM HYDROXIDE TAB [Concomitant]
  11. TOCOPHEROL CONCENTRATE CAP [Concomitant]
  12. LITHIUM CARBONATE [Concomitant]
  13. SODIUM PHOSPHATE DIBASIC/SODIUM PHOSPHATE [Concomitant]
  14. MONOBASIC [Concomitant]
  15. HALOPERIDOL [Concomitant]
  16. OXCARBAZEPINE [Concomitant]

REACTIONS (1)
  - GRANULOCYTOPENIA [None]
